FAERS Safety Report 8736828 (Version 3)
Quarter: 2013Q4

REPORT INFORMATION
  Report Type: Spontaneous
  Country: US (occurrence: US)
  Receive Date: 20120822
  Receipt Date: 20131224
  Transmission Date: 20140711
  Serious: No
  Sender: FDA-Public Use
  Company Number: US-ASTRAZENECA-2012SE56778

PATIENT
  Age: 75 Year
  Sex: Female

DRUGS (2)
  1. CRESTOR [Suspect]
     Dosage: GENERIC
     Route: 065
  2. CRESTOR [Suspect]
     Route: 048

REACTIONS (6)
  - Dysuria [Unknown]
  - Diarrhoea [Unknown]
  - Pain in extremity [Unknown]
  - Gout [Unknown]
  - Diabetes mellitus [Unknown]
  - Drug dose omission [Not Recovered/Not Resolved]
